FAERS Safety Report 7109856-5 (Version None)
Quarter: 2010Q4

REPORT INFORMATION
  Report Type: 
  Country: None (occurrence: None)
  Receive Date: 20101118
  Receipt Date: 20101108
  Transmission Date: 20110411
  Serious: Yes (Hospitalization, Other)
  Sender: FDA-Public Use
  Company Number: DE-JNJFOC-20101102473

PATIENT
  Age: 84 Year
  Sex: Female

DRUGS (10)
  1. RISPERDAL [Suspect]
     Indication: ILL-DEFINED DISORDER
     Route: 048
  2. RISPERDAL [Suspect]
     Route: 048
  3. RISPERDAL [Suspect]
     Route: 048
  4. DOMINAL [Suspect]
     Indication: ILL-DEFINED DISORDER
     Route: 048
     Dates: start: 20091126, end: 20091203
  5. ASPIRIN [Concomitant]
     Route: 048
  6. FUROSEMID [Concomitant]
     Route: 048
  7. OMEPRAZOLE [Concomitant]
     Route: 048
  8. GLIMEPIRIDE [Concomitant]
     Route: 048
  9. RAMIPRIL [Concomitant]
     Route: 048
  10. FORADIL [Concomitant]
     Route: 048

REACTIONS (4)
  - AGGRESSION [None]
  - BLOOD CREATININE INCREASED [None]
  - CIRCADIAN RHYTHM SLEEP DISORDER [None]
  - ELECTROCARDIOGRAM QT PROLONGED [None]
